FAERS Safety Report 6999748-4 (Version None)
Quarter: 2010Q3

REPORT INFORMATION
  Report Type: 
  Country: None (occurrence: None)
  Receive Date: 20100920
  Receipt Date: 20100430
  Transmission Date: 20110219
  Serious: No
  Sender: FDA-Public Use
  Company Number: US-ASTRAZENECA-2010SE19809

PATIENT
  Sex: Female

DRUGS (1)
  1. SEROQUEL XR [Suspect]
     Indication: BIPOLAR DISORDER
     Dosage: 25-50 MG AT BEDTIME
     Route: 048

REACTIONS (3)
  - BRADYPHRENIA [None]
  - MENOPAUSE [None]
  - SOMNOLENCE [None]
